FAERS Safety Report 24211608 (Version 2)
Quarter: 2024Q3

REPORT INFORMATION
  Report Type: Spontaneous
  Country: PL (occurrence: PL)
  Receive Date: 20240814
  Receipt Date: 20240819
  Transmission Date: 20241016
  Serious: Yes (Other)
  Sender: MYLAN
  Company Number: PL-GLPHARMA-24.0938

PATIENT
  Age: 10 Year
  Sex: Female

DRUGS (3)
  1. SORAFENIB [Suspect]
     Active Substance: SORAFENIB
     Indication: Product used for unknown indication
     Dosage: 200 MILLIGRAM/SQ. METER, 43 DAYS BEFORE CAR-T INFUSION, RESUMED ON DAY 28 AFTER CAR-T INFUSION,
     Route: 065
     Dates: start: 2022
  2. SORAFENIB [Suspect]
     Active Substance: SORAFENIB
     Dosage: STARTED APPROXIMATELY 1 YEAR AFTER CD19-CAR T-CELL INFUSION, RE-INTRODUCED FOLLOWING BONE
     Route: 065
  3. KYMRIAH [Concomitant]
     Active Substance: TISAGENLECLEUCEL
     Dosage: UNK
     Route: 065
     Dates: start: 202209

REACTIONS (3)
  - Thrombocytopenia [Unknown]
  - Drug effective for unapproved indication [Not Recovered/Not Resolved]
  - Product use in unapproved indication [Not Recovered/Not Resolved]
